FAERS Safety Report 24213939 (Version 1)
Quarter: 2024Q3

REPORT INFORMATION
  Report Type: Spontaneous
  Country: BR (occurrence: None)
  Receive Date: 20240815
  Receipt Date: 20240815
  Transmission Date: 20241017
  Serious: Yes (Other)
  Sender: ASTRAZENECA
  Company Number: 2024A183752

PATIENT
  Sex: Female

DRUGS (1)
  1. XIGDUO XR [Suspect]
     Active Substance: DAPAGLIFLOZIN PROPANEDIOL\METFORMIN HYDROCHLORIDE
     Indication: Type 2 diabetes mellitus
     Route: 048

REACTIONS (4)
  - Dementia Alzheimer^s type [Not Recovered/Not Resolved]
  - Product use complaint [Unknown]
  - Product dose omission issue [Unknown]
  - Wrong technique in product usage process [Unknown]
